FAERS Safety Report 17176166 (Version 2)
Quarter: 2020Q3

REPORT INFORMATION
  Report Type: Spontaneous
  Country: US (occurrence: US)
  Receive Date: 20191219
  Receipt Date: 20200703
  Transmission Date: 20201102
  Serious: No
  Sender: FDA-Public Use
  Company Number: US-LUNDBECK-DKLU3008417

PATIENT
  Age: 55 Year
  Sex: Male

DRUGS (6)
  1. NORTHERA [Suspect]
     Active Substance: DROXIDOPA
     Indication: ORTHOSTATIC HYPOTENSION
     Route: 048
     Dates: start: 20181011
  2. NORTHERA [Suspect]
     Active Substance: DROXIDOPA
     Route: 048
     Dates: start: 20181011
  3. NORTHERA [Suspect]
     Active Substance: DROXIDOPA
     Route: 048
     Dates: start: 20181006
  4. NORTHERA [Suspect]
     Active Substance: DROXIDOPA
     Route: 048
     Dates: start: 20181011
  5. NORTHERA [Suspect]
     Active Substance: DROXIDOPA
     Route: 048
     Dates: start: 20181006
  6. NORTHERA [Suspect]
     Active Substance: DROXIDOPA
     Route: 048
     Dates: start: 20181006

REACTIONS (3)
  - Therapeutic response decreased [Unknown]
  - Dizziness [Unknown]
  - Nausea [Not Recovered/Not Resolved]
